FAERS Safety Report 9966659 (Version 1)
Quarter: 2014Q1

REPORT INFORMATION
  Report Type: Report from Study
  Country: US (occurrence: US)
  Receive Date: 20140305
  Receipt Date: 20140305
  Transmission Date: 20141002
  Serious: No
  Sender: FDA-Public Use
  Company Number: US-ABBVIE-13P-163-1122038-00

PATIENT
  Age: 50 Year
  Sex: Female

DRUGS (4)
  1. HUMIRA [Suspect]
     Indication: CROHN^S DISEASE
     Dates: start: 20130701, end: 20130701
  2. HUMIRA [Suspect]
     Dates: start: 20130715
  3. OMEPRAZOLE [Concomitant]
     Indication: PRODUCT USED FOR UNKNOWN INDICATION
     Dosage: 20 MG DAILY
  4. B-12 [Concomitant]
     Indication: PRODUCT USED FOR UNKNOWN INDICATION
     Dosage: 1 ML INJECTED MONTHLY

REACTIONS (2)
  - Injection site rash [Not Recovered/Not Resolved]
  - Injection site bruising [Not Recovered/Not Resolved]
